FAERS Safety Report 7703032-0 (Version None)
Quarter: 2011Q3

REPORT INFORMATION
  Report Type: 
  Country: None (occurrence: None)
  Receive Date: 20110823
  Receipt Date: 20110815
  Transmission Date: 20111222
  Serious: No
  Sender: FDA-Public Use
  Company Number: US-ROXANE LABORATORIES, INC.-2011-RO-01179RO

PATIENT
  Sex: Female

DRUGS (2)
  1. ROPINIROLE [Suspect]
     Indication: RESTLESS LEGS SYNDROME
     Dosage: 0.5 MG
     Route: 048
     Dates: start: 20110301, end: 20110501
  2. ROPINIROLE [Suspect]
     Dosage: 1 MG
     Route: 048
     Dates: start: 20110501, end: 20110810

REACTIONS (1)
  - OEDEMA PERIPHERAL [None]
